FAERS Safety Report 4753526-5 (Version None)
Quarter: 2005Q3

REPORT INFORMATION
  Report Type: 
  Country: None (occurrence: None)
  Receive Date: 20050826
  Receipt Date: 20050523
  Transmission Date: 20060218
  Serious: Yes (Other)
  Sender: FDA-Public Use
  Company Number: PHBS2005BE07523

PATIENT
  Age: 50 Year
  Sex: Female

DRUGS (4)
  1. AREDIA [Suspect]
     Indication: METASTASES TO BONE
     Dosage: 90 MG, QMO
     Route: 042
     Dates: start: 20000801, end: 20041201
  2. ZOLADEX [Concomitant]
     Dosage: UNK, UNK
     Route: 065
     Dates: end: 20050201
  3. NOLVADEX [Concomitant]
     Dosage: 20 MG/D
     Route: 065
     Dates: start: 20000901, end: 20050201
  4. RADIOTHERAPY [Concomitant]
     Route: 065
     Dates: start: 20000813, end: 20001020

REACTIONS (13)
  - ABSCESS DRAINAGE [None]
  - ABSCESS JAW [None]
  - ASEPTIC NECROSIS BONE [None]
  - BONE DEBRIDEMENT [None]
  - GINGIVAL DISORDER [None]
  - MUCOSAL EROSION [None]
  - OSTEOMYELITIS CHRONIC [None]
  - OSTEONECROSIS [None]
  - PERIODONTAL DISEASE [None]
  - PLASTIC SURGERY [None]
  - POST PROCEDURAL FISTULA [None]
  - TOOTH EXTRACTION [None]
  - WOUND DEBRIDEMENT [None]
